FAERS Safety Report 6793206-8 (Version None)
Quarter: 2010Q2

REPORT INFORMATION
  Report Type: 
  Country: None (occurrence: None)
  Receive Date: 20100624
  Receipt Date: 20090824
  Transmission Date: 20101027
  Serious: Yes (Other)
  Sender: FDA-Public Use
  Company Number: US-MYLANLABS-2009S1013997

PATIENT
  Age: 39 Year
  Sex: Male
  Weight: 108.41 kg

DRUGS (5)
  1. CLOZAPINE [Suspect]
     Indication: SCHIZOAFFECTIVE DISORDER
     Route: 048
     Dates: start: 20060427, end: 20090609
  2. CLOZAPINE [Suspect]
     Route: 048
     Dates: start: 20060427, end: 20090609
  3. DIVALPROEX SODIUM [Concomitant]
  4. RISPERIDONE [Concomitant]
  5. LEVOTHYROXINE [Concomitant]

REACTIONS (1)
  - GRANULOCYTOPENIA [None]
